FAERS Safety Report 5397931-5 (Version None)
Quarter: 2007Q3

REPORT INFORMATION
  Report Type: 
  Country: None (occurrence: None)
  Receive Date: 20070724
  Receipt Date: 20070710
  Transmission Date: 20080115
  Serious: Yes (Death)
  Sender: FDA-Public Use
  Company Number: 2007EN000185

PATIENT
  Age: 28 Year
  Sex: Male
  Weight: 72.5755 kg

DRUGS (2)
  1. OPANA ER [Suspect]
     Indication: DRUG ABUSER
     Dosage: 20 MG; X1; PO
     Route: 048
     Dates: start: 20070401, end: 20070401
  2. ALCOHOL                   /00002101/ [Suspect]
     Indication: ALCOHOL USE
     Dates: end: 20070401

REACTIONS (3)
  - ALCOHOL POISONING [None]
  - INTENTIONAL DRUG MISUSE [None]
  - THERAPEUTIC AGENT TOXICITY [None]
